FAERS Safety Report 9827793 (Version 1)
Quarter: 2014Q1

REPORT INFORMATION
  Report Type: Spontaneous
  Country: US (occurrence: US)
  Receive Date: 20140117
  Receipt Date: 20140117
  Transmission Date: 20141002
  Serious: Yes (Other)
  Sender: FDA-Public Use
  Company Number: US-SA-2014SA006704

PATIENT
  Sex: Male

DRUGS (2)
  1. LANTUS [Suspect]
     Dosage: DOSE:106 UNIT(S)
     Route: 051
     Dates: start: 2011
  2. NOVOLOG [Suspect]
     Dosage: SLIDING SCALE OF NOVOLOG
     Route: 065

REACTIONS (10)
  - Oedema peripheral [Unknown]
  - Pancreatic steatosis [Unknown]
  - Sleep apnoea syndrome [Unknown]
  - Pain [Unknown]
  - Urinary tract infection [Unknown]
  - Bronchitis [Unknown]
  - Headache [Unknown]
  - Glycosylated haemoglobin increased [Unknown]
  - Blood glucose increased [Unknown]
  - Blood glucose abnormal [Unknown]
